FAERS Safety Report 17727836 (Version 15)
Quarter: 2025Q2

REPORT INFORMATION
  Report Type: Spontaneous
  Country: US (occurrence: US)
  Receive Date: 20200430
  Receipt Date: 20250604
  Transmission Date: 20250716
  Serious: Yes (Other)
  Sender: PFIZER
  Company Number: US-PFIZER INC-2020173254

PATIENT
  Age: 85 Year
  Sex: Female
  Weight: 49.9 kg

DRUGS (3)
  1. XALKORI [Suspect]
     Active Substance: CRIZOTINIB
     Indication: Neoplasm malignant
     Dosage: 200 MG, 2X/DAY
  2. XALKORI [Suspect]
     Active Substance: CRIZOTINIB
     Dosage: 200 MG TWICE A DAY
  3. XALKORI [Suspect]
     Active Substance: CRIZOTINIB

REACTIONS (4)
  - Mental disorder [Not Recovered/Not Resolved]
  - Metastases to central nervous system [Unknown]
  - Metastases to bone [Unknown]
  - Herpes zoster [Unknown]

NARRATIVE: CASE EVENT DATE: 20241225
